FAERS Safety Report 20826863 (Version 3)
Quarter: 2022Q3

REPORT INFORMATION
  Report Type: Spontaneous
  Country: US (occurrence: US)
  Receive Date: 20220513
  Receipt Date: 20220704
  Transmission Date: 20221026
  Serious: Yes (Death, Other)
  Sender: FDA-Public Use
  Company Number: US-GLAXOSMITHKLINE-US2022076040

PATIENT

DRUGS (21)
  1. BLENREP [Suspect]
     Active Substance: BELANTAMAB MAFODOTIN-BLMF
     Indication: Plasma cell myeloma
     Dosage: 2.5 MG, Z (EVERY 3 WEEK) 100MG INFUSION
     Dates: start: 20220502, end: 20220507
  2. ZOVIRAX [Suspect]
     Active Substance: ACYCLOVIR
     Indication: Antiviral prophylaxis
     Dosage: 1 DF, QD (1 TABLET DAILY, 7 REFILLS)
     Route: 048
     Dates: start: 20220202
  3. ZYLOPRIM [Suspect]
     Active Substance: ALLOPURINOL
     Indication: Hyperuricaemia
     Dosage: 1 DF, Z (IN MORNING)
     Route: 048
     Dates: start: 20220425
  4. FELDENE [Suspect]
     Active Substance: PIROXICAM
     Indication: Pain
     Dosage: 1 DF (1 CAPSULE, AS NEEDED)
     Route: 048
     Dates: start: 20220424
  5. FLOMAX [Suspect]
     Active Substance: TAMSULOSIN HYDROCHLORIDE
     Indication: Benign prostatic hyperplasia
     Dosage: 1 DF, QD (1 CAPSULE)
     Route: 048
     Dates: start: 20220113
  6. TESSALON [Suspect]
     Active Substance: BENZONATATE
     Indication: Cough
     Dosage: UNK, TID (1-2 CAPSULES, AS NEEDED, 1 REFILL)
     Route: 048
  7. ALPHAGAN P [Suspect]
     Active Substance: BRIMONIDINE TARTRATE
     Indication: Open angle glaucoma
     Dosage: UNK UNK, BID (1 DROP, 3 REFILLS)
     Route: 047
     Dates: start: 20220110
  8. REFRESH PLUS [Suspect]
     Active Substance: CARBOXYMETHYLCELLULOSE SODIUM
     Indication: Ocular toxicity
     Dosage: UNK UNK, QID (1 DROP, 11 REFILLS)
     Route: 047
     Dates: start: 20220411
  9. COLACE [Suspect]
     Active Substance: DOCUSATE SODIUM
     Indication: Constipation
     Dosage: UNK, BID
     Route: 048
  10. DURAGESIC [Suspect]
     Active Substance: FENTANYL
     Indication: Pain
     Dosage: UNK, (1 PATCH EVERY 72 HRS)
     Route: 062
     Dates: start: 20220502
  11. HEPARIN SODIUM [Suspect]
     Active Substance: HEPARIN SODIUM
     Indication: Product used for unknown indication
     Dosage: 500 DF, Z (500 UNITS PRN, INTRA-CATHETER)
     Dates: start: 20220118
  12. XYLOCAINE [Suspect]
     Active Substance: LIDOCAINE HYDROCHLORIDE
     Indication: Tumour pain
     Dosage: UNK (1 DROP AT BEDTIME)
     Route: 061
     Dates: start: 20220424
  13. ATIVAN [Suspect]
     Active Substance: LORAZEPAM
     Indication: Anxiety
     Dosage: 1 DF, QD (1 TABLET)
     Route: 048
     Dates: start: 20220505
  14. MAGNESIUM OXIDE [Suspect]
     Active Substance: MAGNESIUM OXIDE
     Indication: Hypomagnesaemia
     Dosage: 1 DF, QD (1 TABLET)
     Route: 048
     Dates: start: 20220301
  15. MORPHINE SULFATE [Suspect]
     Active Substance: MORPHINE SULFATE
     Indication: Pain
     Dosage: UNK, QID (HALF TO 1 TABLET)
     Route: 048
     Dates: start: 20220424
  16. ZOFRAN [Suspect]
     Active Substance: ONDANSETRON HYDROCHLORIDE
     Indication: Nausea
     Dosage: 1 DF, TID (1 TABLET EVERY 8 HR.)
     Route: 048
     Dates: start: 20220202
  17. ZOFRAN [Suspect]
     Active Substance: ONDANSETRON HYDROCHLORIDE
     Indication: Vomiting
  18. MIRALAX [Suspect]
     Active Substance: POLYETHYLENE GLYCOL 3350
     Indication: Constipation
     Dosage: 17 G, QD
     Route: 048
     Dates: start: 20220401
  19. SENOKOT [Suspect]
     Active Substance: SENNOSIDES
     Indication: Product used for unknown indication
     Dosage: 8.6 MG, Z (AS NEEDED)
     Route: 048
  20. DESYREL [Suspect]
     Active Substance: TRAZODONE HYDROCHLORIDE
     Indication: Insomnia
     Dosage: UNK (1-2 TABLETS AT BEDTIME)
     Route: 048
     Dates: start: 20220424
  21. XALATAN [Suspect]
     Active Substance: LATANOPROST
     Indication: Open angle glaucoma
     Dosage: UNK
     Dates: start: 20211004

REACTIONS (1)
  - Death [Fatal]
